FAERS Safety Report 25396032 (Version 1)
Quarter: 2025Q2

REPORT INFORMATION
  Report Type: Spontaneous
  Country: US (occurrence: None)
  Receive Date: 20250603
  Receipt Date: 20250603
  Transmission Date: 20250716
  Serious: Yes (Life-Threatening, Hospitalization, Disabling, Other)
  Sender: FDA-CTU
  Company Number: None

PATIENT
  Age: 50 Year
  Sex: Male
  Weight: 119.25 kg

DRUGS (9)
  1. REPATHA [Suspect]
     Active Substance: EVOLOCUMAB
     Indication: Blood cholesterol increased
     Route: 058
     Dates: start: 20241209, end: 20250209
  2. LISINOPRIL [Concomitant]
     Active Substance: LISINOPRIL
  3. ASPIRIN [Concomitant]
     Active Substance: ASPIRIN
  4. ALLOPURINOL [Concomitant]
     Active Substance: ALLOPURINOL
  5. celebrex 100mg [Concomitant]
  6. PRILOSEC [Concomitant]
     Active Substance: OMEPRAZOLE MAGNESIUM
  7. VITAMIN D [Concomitant]
     Active Substance: VITAMIN D NOS
  8. FISH OIL [Concomitant]
     Active Substance: FISH OIL
  9. GARLIC [Concomitant]
     Active Substance: GARLIC

REACTIONS (8)
  - Pyrexia [None]
  - Asthenia [None]
  - Arthralgia [None]
  - Job dissatisfaction [None]
  - Pain [None]
  - Inflammatory marker increased [None]
  - Liver abscess [None]
  - Diabetes mellitus [None]

NARRATIVE: CASE EVENT DATE: 20250418
